FAERS Safety Report 17284119 (Version 1)
Quarter: 2020Q1

REPORT INFORMATION
  Report Type: Report from Study
  Country: CO (occurrence: CO)
  Receive Date: 20200117
  Receipt Date: 20200117
  Transmission Date: 20200409
  Serious: Yes (Death)
  Sender: FDA-Public Use
  Company Number: CO-SEATTLE GENETICS-2019SGN02063

PATIENT
  Age: 62 Year
  Sex: Male
  Weight: 86 kg

DRUGS (2)
  1. FILGRASTIM [Suspect]
     Active Substance: FILGRASTIM
     Dosage: UNK
     Route: 065
  2. BRENTUXIMAB VEDOTIN-MPI [Suspect]
     Active Substance: BRENTUXIMAB VEDOTIN
     Indication: HODGKIN^S DISEASE
     Dosage: 154 MILLIGRAMS, Q3WEEKS
     Route: 042
     Dates: start: 20190523, end: 20191016

REACTIONS (7)
  - Pyrexia [Unknown]
  - Influenza [Unknown]
  - Dysphonia [Unknown]
  - Death [Fatal]
  - Varicella [Not Recovered/Not Resolved]
  - Haemoglobin decreased [Not Recovered/Not Resolved]
  - Lung disorder [Unknown]

NARRATIVE: CASE EVENT DATE: 20190804
